FAERS Safety Report 12230469 (Version 1)
Quarter: 2016Q1

REPORT INFORMATION
  Report Type: Spontaneous
  Country: US (occurrence: None)
  Receive Date: 20160331
  Receipt Date: 20160331
  Transmission Date: 20160526
  Serious: Yes (Other)
  Sender: FDA-Public Use
  Company Number: None

PATIENT
  Age: 71 Year
  Sex: Male

DRUGS (1)
  1. GLEEVEC [Suspect]
     Active Substance: IMATINIB MESYLATE
     Indication: PRODUCT USED FOR UNKNOWN INDICATION
     Dosage: ORAL 047 ORAL QDAY
     Route: 048
     Dates: start: 2008

REACTIONS (3)
  - Skin exfoliation [None]
  - Eye haemorrhage [None]
  - Nail disorder [None]

NARRATIVE: CASE EVENT DATE: 20160330
